FAERS Safety Report 17833419 (Version 2)
Quarter: 2020Q2

REPORT INFORMATION
  Report Type: Spontaneous
  Country: SE (occurrence: SE)
  Receive Date: 20200528
  Receipt Date: 20200616
  Transmission Date: 20200714
  Serious: Yes (Other)
  Sender: FDA-Public Use
  Company Number: SE-ORION CORPORATION ORION PHARMA-TREX2020-2116

PATIENT
  Age: 76 Year
  Sex: Male
  Weight: 88 kg

DRUGS (2)
  1. CORTISONE [Suspect]
     Active Substance: CORTISONE
     Indication: PRODUCT USED FOR UNKNOWN INDICATION
     Route: 065
  2. METHOTREXATE (TRADE NAME UNKNOWN) [Suspect]
     Active Substance: METHOTREXATE
     Indication: RHEUMATIC DISORDER
     Dosage: STRENGTH: 2.5 MG?START DATE: 2013/2014
     Route: 065

REACTIONS (4)
  - Sleep apnoea syndrome [Recovered/Resolved]
  - Infection [Recovering/Resolving]
  - Cardiac fibrillation [Recovered/Resolved]
  - Groin infection [Recovered/Resolved]

NARRATIVE: CASE EVENT DATE: 201810
